FAERS Safety Report 7591391-1 (Version None)
Quarter: 2011Q3

REPORT INFORMATION
  Report Type: 
  Country: None (occurrence: None)
  Receive Date: 20110706
  Receipt Date: 20110623
  Transmission Date: 20111222
  Serious: Yes (Hospitalization, Other)
  Sender: FDA-Public Use
  Company Number: JP-AMGEN-JPNCT2010009642

PATIENT
  Age: 67 Year
  Sex: Female
  Weight: 43 kg

DRUGS (20)
  1. MEFENAMIC ACID [Concomitant]
     Route: 048
  2. FERROUS CITRATE [Concomitant]
     Route: 048
  3. FERROUS CITRATE [Concomitant]
     Route: 048
  4. LOXOPROFEN [Concomitant]
     Route: 048
  5. BIOFERMIN [Concomitant]
     Route: 048
  6. ADALAT CC [Concomitant]
     Route: 048
  7. ALOSENN [Concomitant]
     Route: 048
  8. OXALIPLATIN [Suspect]
     Indication: COLORECTAL CANCER
     Route: 041
     Dates: start: 20100825, end: 20101104
  9. RINDERON-VG [Concomitant]
     Route: 062
  10. FLUOROURACIL [Suspect]
     Route: 041
     Dates: start: 20100825, end: 20101104
  11. LEUCOVORIN CALCIUM [Suspect]
     Indication: COLORECTAL CANCER
     Route: 041
     Dates: start: 20100825, end: 20101104
  12. LASIX [Concomitant]
     Route: 048
  13. PANITUMUMAB [Suspect]
     Indication: COLORECTAL CANCER
     Dosage: 6 MG/KG, Q2WK
     Route: 041
     Dates: start: 20100825, end: 20101006
  14. ACETAMINOPHEN [Concomitant]
     Route: 048
  15. PANITUMUMAB [Suspect]
     Dosage: 6 MG/KG, Q2WK
     Dates: start: 20101104, end: 20101104
  16. DIFFERIN [Concomitant]
     Route: 062
  17. LASIX [Concomitant]
     Route: 048
  18. SELBEX [Concomitant]
     Route: 048
  19. ALBUMIN TANNATE [Concomitant]
     Route: 048
  20. FLUOROURACIL [Suspect]
     Indication: COLORECTAL CANCER
     Route: 040
     Dates: start: 20100825, end: 20101104

REACTIONS (6)
  - DIARRHOEA [None]
  - BLOOD CREATININE INCREASED [None]
  - DERMATITIS ACNEIFORM [None]
  - GASTROINTESTINAL INFLAMMATION [None]
  - ANAEMIA [None]
  - PARONYCHIA [None]
